FAERS Safety Report 20148389 (Version 1)
Quarter: 2021Q4

REPORT INFORMATION
  Report Type: Other
  Country: CA (occurrence: None)
  Receive Date: 20211204
  Receipt Date: 20211204
  Transmission Date: 20220304
  Serious: Yes (Hospitalization)
  Sender: FDA-Public Use
  Company Number: CA-ROCHE-2964534

PATIENT
  Age: 43 Year
  Sex: Female

DRUGS (1)
  1. OCREVUS [Suspect]
     Active Substance: OCRELIZUMAB
     Indication: Multiple sclerosis
     Dosage: ONE DOSE, EVERY 6 MONTHS
     Route: 041

REACTIONS (1)
  - Crohn^s disease [Unknown]
